FAERS Safety Report 4702512-X (Version None)
Quarter: 2005Q2

REPORT INFORMATION
  Report Type: 
  Country: None (occurrence: None)
  Receive Date: 20050629
  Receipt Date: 20050603
  Transmission Date: 20051028
  Serious: Yes (Other)
  Sender: FDA-Public Use
  Company Number: JP-JNJFOC-20050606939

PATIENT
  Age: 64 Year
  Sex: Male

DRUGS (28)
  1. REMICADE [Suspect]
     Route: 042
  2. REMICADE [Suspect]
     Route: 042
  3. REMICADE [Suspect]
     Route: 042
  4. REMICADE [Suspect]
     Indication: RHEUMATOID ARTHRITIS
     Route: 042
  5. FLUCONAZOLE [Concomitant]
  6. ISCOTIN [Concomitant]
  7. METHOTREXATE [Concomitant]
  8. PREDNISOLONE [Concomitant]
  9. ALOSENN [Concomitant]
  10. ALOSENN [Concomitant]
  11. ALOSENN [Concomitant]
  12. ALOSENN [Concomitant]
  13. ALOSENN [Concomitant]
  14. BACTRAMIN [Concomitant]
  15. BACTRAMIN [Concomitant]
  16. DICLOFENAC SODIUM [Concomitant]
  17. ESTAZOLAM [Concomitant]
  18. ETIZOLAM [Concomitant]
  19. FAMOTIDINE [Concomitant]
  20. INDOMETACIN FARNESIL [Concomitant]
  21. KAMAG G [Concomitant]
  22. PL [Concomitant]
  23. PYRIDOXAL PHOSPHATE [Concomitant]
  24. REBAMIPIDE [Concomitant]
  25. RILMAZAFONE [Concomitant]
  26. SODIUM AZULENE [Concomitant]
  27. SULFONATE L GLUTAMINE [Concomitant]
  28. TRIAZOLAM [Concomitant]

REACTIONS (1)
  - PNEUMOCYSTIS JIROVECI PNEUMONIA [None]
